FAERS Safety Report 6700096-8 (Version None)
Quarter: 2010Q2

REPORT INFORMATION
  Report Type: 
  Country: None (occurrence: None)
  Receive Date: 20100427
  Receipt Date: 20100427
  Transmission Date: 20101027
  Serious: Yes (Disabling)
  Sender: FDA-Public Use
  Company Number: None

PATIENT
  Age: 52 Year
  Sex: Female
  Weight: 63.5036 kg

DRUGS (2)
  1. ALDARA [Suspect]
     Indication: BASAL CELL CARCINOMA
     Dosage: APPLY DAILY TO AREA M-F FOR 6 WEEKS TOP
     Route: 061
     Dates: start: 20100329, end: 20100409
  2. ALDARA [Suspect]
     Indication: BASAL CELL CARCINOMA
     Dosage: APPLY DAILY TO AREA M-F FOR 6 WEEKS TOP
     Route: 061
     Dates: start: 20100419, end: 20100423

REACTIONS (8)
  - BRONCHITIS [None]
  - COUGH [None]
  - DRY THROAT [None]
  - HERPES VIRUS INFECTION [None]
  - LYMPHADENOPATHY [None]
  - SINUSITIS [None]
  - STOMATITIS [None]
  - THERMAL BURN [None]
